FAERS Safety Report 7355991-6 (Version None)
Quarter: 2011Q1

REPORT INFORMATION
  Report Type: 
  Country: None (occurrence: None)
  Receive Date: 20110316
  Receipt Date: 20101210
  Transmission Date: 20110831
  Serious: No
  Sender: FDA-Public Use
  Company Number: US-ABBOTT-10P-163-0691502-00

PATIENT
  Sex: Female
  Weight: 60.382 kg

DRUGS (3)
  1. TRILIPIX [Suspect]
     Indication: BLOOD TRIGLYCERIDES INCREASED
     Route: 048
     Dates: start: 20101001, end: 20101129
  2. LISINOPRIL [Concomitant]
     Indication: HYPERTENSION
     Route: 048
  3. NEXIUM [Concomitant]
     Indication: DYSPEPSIA
     Route: 048

REACTIONS (6)
  - GAIT DISTURBANCE [None]
  - FATIGUE [None]
  - ASTHENIA [None]
  - MYALGIA [None]
  - HEADACHE [None]
  - DYSPEPSIA [None]
